FAERS Safety Report 5844754-6 (Version None)
Quarter: 2008Q3

REPORT INFORMATION
  Report Type: 
  Country: None (occurrence: None)
  Receive Date: 20080812
  Receipt Date: 20080730
  Transmission Date: 20090109
  Serious: Yes (Hospitalization, Other)
  Sender: FDA-Public Use
  Company Number: 2008S1013524

PATIENT
  Age: 63 Year
  Sex: Female
  Weight: 185 kg

DRUGS (4)
  1. FUROSEMIDE TABLETS, USP (20 MG) [Suspect]
     Indication: OEDEMA
     Dosage: 20 MG;DAILY;ORAL
     Route: 048
     Dates: start: 20080601, end: 20080712
  2. FUROSEMIDE TABLETS, USP (20 MG) [Suspect]
     Indication: OEDEMA
     Dosage: 20 MG;DAILY;ORAL
     Route: 048
     Dates: start: 20080719, end: 20080723
  3. NORVASC [Concomitant]
  4. ENALAPRIL MALEATE [Concomitant]

REACTIONS (3)
  - RASH PRURITIC [None]
  - STRESS [None]
  - SYNCOPE [None]
